FAERS Safety Report 6165245-1 (Version None)
Quarter: 2009Q2

REPORT INFORMATION
  Report Type: 
  Country: None (occurrence: None)
  Receive Date: 20090421
  Receipt Date: 20090421
  Transmission Date: 20091009
  Serious: Yes (Other)
  Sender: FDA-Public Use
  Company Number: None

PATIENT
  Age: 2 Year
  Sex: Female
  Weight: 11.7935 kg

DRUGS (1)
  1. SINGULAIR [Suspect]
     Indication: MULTIPLE ALLERGIES
     Dosage: 4MG ONCE A DAY PO
     Route: 048
     Dates: start: 20090414, end: 20090419

REACTIONS (10)
  - ABNORMAL BEHAVIOUR [None]
  - ABNORMAL DREAMS [None]
  - AGGRESSION [None]
  - ANHEDONIA [None]
  - CONVULSION [None]
  - CRYING [None]
  - HALLUCINATION [None]
  - INAPPROPRIATE AFFECT [None]
  - INSOMNIA [None]
  - SLEEP DISORDER [None]
